FAERS Safety Report 6466041-8 (Version None)
Quarter: 2009Q4

REPORT INFORMATION
  Report Type: 
  Country: None (occurrence: None)
  Receive Date: 20091202
  Receipt Date: 20091124
  Transmission Date: 20100525
  Serious: Yes (Hospitalization, Other)
  Sender: FDA-Public Use
  Company Number: FR-JNJFOC-20091107277

PATIENT
  Age: 66 Year
  Sex: Male

DRUGS (9)
  1. TAVANIC [Suspect]
     Indication: DRUG USE FOR UNKNOWN INDICATION
     Route: 065
     Dates: start: 20090715, end: 20090726
  2. ZYPREXA [Suspect]
     Indication: DRUG USE FOR UNKNOWN INDICATION
     Route: 065
  3. OMEPRAZOLE [Concomitant]
     Route: 065
  4. NEBILOX [Concomitant]
     Route: 065
  5. AMLOR [Concomitant]
     Route: 065
  6. ESIDRIX [Concomitant]
     Route: 065
  7. COVERSYL [Concomitant]
     Route: 065
  8. TAHOR [Concomitant]
     Route: 065
  9. PLAVIX [Concomitant]
     Route: 065

REACTIONS (3)
  - CONVULSION [None]
  - HYPOCALCAEMIA [None]
  - URINARY INCONTINENCE [None]
